FAERS Safety Report 7049502-2 (Version None)
Quarter: 2010Q4

REPORT INFORMATION
  Report Type: 
  Country: None (occurrence: None)
  Receive Date: 20101013
  Receipt Date: 20100928
  Transmission Date: 20110411
  Serious: Yes (Other)
  Sender: FDA-Public Use
  Company Number: SP1201000205

PATIENT
  Age: 33 Year
  Sex: Female
  Weight: 63.5 kg

DRUGS (2)
  1. AMITIZA [Suspect]
     Dosage: ORAL
     Route: 048
  2. ALCOHOL (ETHANOL) [Suspect]

REACTIONS (2)
  - BLOOD ALCOHOL INCREASED [None]
  - ROAD TRAFFIC ACCIDENT [None]
